FAERS Safety Report 10204828 (Version 1)
Quarter: 2014Q2

REPORT INFORMATION
  Report Type: Spontaneous
  Country: AU (occurrence: AU)
  Receive Date: 20140529
  Receipt Date: 20140529
  Transmission Date: 20141212
  Serious: Yes (Other)
  Sender: FDA-Public Use
  Company Number: AU-ASTRAZENECA-2014SE35617

PATIENT
  Age: 23119 Day
  Sex: Female

DRUGS (1)
  1. SYMBICORT TURBUHALER [Suspect]
     Route: 055
     Dates: start: 20140503, end: 20140503

REACTIONS (3)
  - Lip swelling [Recovered/Resolved]
  - Paraesthesia [Recovered/Resolved]
  - Cheilitis [Recovered/Resolved]
